FAERS Safety Report 20536607 (Version 1)
Quarter: 2022Q1

REPORT INFORMATION
  Report Type: Spontaneous
  Country: BE (occurrence: BE)
  Receive Date: 20220302
  Receipt Date: 20220302
  Transmission Date: 20220423
  Serious: Yes (Death)
  Sender: FDA-Public Use
  Company Number: BE-AstraZeneca-2021-27728

PATIENT
  Age: 45 Year
  Sex: Male

DRUGS (37)
  1. IBUPROFEN [Suspect]
     Active Substance: IBUPROFEN
     Indication: Pain
     Route: 048
     Dates: start: 20210225
  2. MONALIZUMAB [Suspect]
     Active Substance: MONALIZUMAB
     Indication: Squamous cell carcinoma of head and neck
     Route: 042
     Dates: start: 20210924, end: 20210924
  3. MONALIZUMAB [Suspect]
     Active Substance: MONALIZUMAB
     Route: 042
     Dates: start: 20211022, end: 20211022
  4. MONALIZUMAB [Suspect]
     Active Substance: MONALIZUMAB
     Route: 042
     Dates: start: 20210827, end: 20210827
  5. MONALIZUMAB [Suspect]
     Active Substance: MONALIZUMAB
     Route: 042
     Dates: start: 20210910, end: 20210910
  6. MONALIZUMAB [Suspect]
     Active Substance: MONALIZUMAB
     Route: 042
     Dates: start: 20211105, end: 20211105
  7. MONALIZUMAB [Suspect]
     Active Substance: MONALIZUMAB
     Route: 042
     Dates: start: 20211008, end: 20211008
  8. CETUXIMAB [Suspect]
     Active Substance: CETUXIMAB
     Indication: Squamous cell carcinoma of head and neck
     Route: 042
     Dates: start: 20211015, end: 20211015
  9. CETUXIMAB [Suspect]
     Active Substance: CETUXIMAB
     Route: 042
     Dates: start: 20210903, end: 20210903
  10. CETUXIMAB [Suspect]
     Active Substance: CETUXIMAB
     Route: 042
     Dates: start: 20210910, end: 20210910
  11. CETUXIMAB [Suspect]
     Active Substance: CETUXIMAB
     Route: 042
     Dates: start: 20211008, end: 20211008
  12. CETUXIMAB [Suspect]
     Active Substance: CETUXIMAB
     Route: 042
     Dates: start: 20210827, end: 20210827
  13. CETUXIMAB [Suspect]
     Active Substance: CETUXIMAB
     Route: 042
     Dates: start: 20211001, end: 20211001
  14. CETUXIMAB [Suspect]
     Active Substance: CETUXIMAB
     Route: 042
     Dates: start: 20211029, end: 20211029
  15. CETUXIMAB [Suspect]
     Active Substance: CETUXIMAB
     Route: 042
     Dates: start: 20210924, end: 20210924
  16. CETUXIMAB [Suspect]
     Active Substance: CETUXIMAB
     Route: 042
     Dates: start: 20211022, end: 20211022
  17. CETUXIMAB [Suspect]
     Active Substance: CETUXIMAB
     Route: 042
     Dates: start: 20210917, end: 20210917
  18. CETUXIMAB [Suspect]
     Active Substance: CETUXIMAB
     Route: 042
     Dates: start: 20211105, end: 20211105
  19. CETUXIMAB [Suspect]
     Active Substance: CETUXIMAB
     Route: 042
     Dates: start: 20211112, end: 20211112
  20. FENTANYL [Concomitant]
     Active Substance: FENTANYL
     Indication: Pain
     Dosage: 25.00 UG  EVERY 3 DAYS
     Route: 062
     Dates: start: 20210903
  21. SOLIFENACIN [Concomitant]
     Active Substance: SOLIFENACIN
     Indication: Urinary incontinence
     Route: 048
     Dates: start: 20210225
  22. FORTIMEL COMPACT PROTEIN [Concomitant]
     Indication: Decreased appetite
     Dosage: 1.00 FLACON  DAILY
     Route: 048
     Dates: start: 20210917
  23. TRAMADOL [Concomitant]
     Active Substance: TRAMADOL
     Indication: Pain
     Route: 048
     Dates: start: 20210225
  24. NUTRISON PROTEIN PLUS MULTI FIBRE (TUBEFEEDING) [Concomitant]
     Indication: Decreased appetite
     Route: 065
     Dates: start: 20211028
  25. CICAPLAST [Concomitant]
     Indication: Rash
     Dosage: 1.00 APPLICATION  AS REQUIRED
     Route: 061
     Dates: start: 20210910
  26. MOVICOL [Concomitant]
     Active Substance: POLYETHYLENE GLYCOL 3350\POTASSIUM CHLORIDE\SODIUM BICARBONATE\SODIUM CHLORIDE
     Indication: Constipation prophylaxis
     Dosage: 1.00 SACHET  AS REQUIRED
     Route: 048
     Dates: start: 20210823
  27. MINOCYCLINE [Concomitant]
     Active Substance: MINOCYCLINE HYDROCHLORIDE
     Indication: Rash
     Route: 048
     Dates: start: 20211027
  28. ISOBETADINE [Concomitant]
     Indication: Neck injury
     Dosage: 1.00 APPLICATION  DAILY
     Route: 061
     Dates: start: 20210903
  29. ZOLPIDEM [Concomitant]
     Active Substance: ZOLPIDEM TARTRATE
     Indication: Hypersomnia
     Route: 048
     Dates: start: 2019
  30. ACETAMINOPHEN [Concomitant]
     Active Substance: ACETAMINOPHEN
     Indication: Pain
     Route: 048
     Dates: start: 20200922
  31. OXYCODONE HYDROCHLORIDE [Concomitant]
     Active Substance: OXYCODONE HYDROCHLORIDE
     Indication: Pain
     Dosage: ; AS REQUIRED
     Route: 048
     Dates: start: 20210823
  32. ALIZAPRIDE LITICAN [Concomitant]
     Indication: Decreased appetite
     Dosage: ; AS REQUIRED
     Route: 048
     Dates: start: 20211027
  33. RISPERIDONE [Concomitant]
     Active Substance: RISPERIDONE
     Indication: Psychotic disorder
     Route: 048
     Dates: start: 20210225, end: 20211031
  34. LEVOCETIRIZINE [Concomitant]
     Active Substance: LEVOCETIRIZINE
     Indication: Premedication
     Route: 048
     Dates: start: 20210827
  35. TRAMADOL HYDROCHLORIDE [Concomitant]
     Active Substance: TRAMADOL HYDROCHLORIDE
     Indication: Pain
     Route: 048
     Dates: start: 20210225
  36. TRANXENE [Concomitant]
     Active Substance: CLORAZEPATE DIPOTASSIUM
     Indication: Psychotic disorder
     Route: 048
     Dates: start: 2019
  37. LEVOTHYROXINE [Concomitant]
     Active Substance: LEVOTHYROXINE
     Indication: Hypothyroidism
     Route: 048
     Dates: start: 20210329

REACTIONS (1)
  - Gastric haemorrhage [Fatal]

NARRATIVE: CASE EVENT DATE: 20211115
